FAERS Safety Report 5405910-4 (Version None)
Quarter: 2007Q3

REPORT INFORMATION
  Report Type: 
  Country: None (occurrence: None)
  Receive Date: 20070806
  Receipt Date: 20070727
  Transmission Date: 20080115
  Serious: Yes (Other)
  Sender: FDA-Public Use
  Company Number: GB-AVENTIS-200716997GDDC

PATIENT
  Age: 22 Year
  Sex: Female

DRUGS (3)
  1. FLAGYL [Suspect]
     Route: 048
     Dates: start: 20070704, end: 20070706
  2. AMOXICILLIN [Concomitant]
     Route: 048
  3. CHLORHEXIDINE GLUCONATE [Concomitant]
     Dosage: DOSE: 0.2%
     Route: 048

REACTIONS (5)
  - DIARRHOEA [None]
  - DIZZINESS [None]
  - HEADACHE [None]
  - MYALGIA [None]
  - POLLAKIURIA [None]
